FAERS Safety Report 16677409 (Version 2)
Quarter: 2020Q1

REPORT INFORMATION
  Report Type: Spontaneous
  Country: FR (occurrence: FR)
  Receive Date: 20190807
  Receipt Date: 20200115
  Transmission Date: 20200409
  Serious: Yes (Disabling)
  Sender: FDA-Public Use
  Company Number: FR-PFIZER INC-2019331568

PATIENT
  Age: 59 Year
  Sex: Male

DRUGS (4)
  1. PARKINANE LP [Suspect]
     Active Substance: TRIHEXYPHENIDYL HYDROCHLORIDE
     Indication: PARKINSONISM
     Dosage: UNK
     Route: 048
     Dates: end: 201903
  2. DEPAKOTE [Suspect]
     Active Substance: DIVALPROEX SODIUM
     Indication: DEPRESSION
     Dosage: 2 DF, 1X/DAY
     Route: 048
     Dates: start: 201808, end: 201906
  3. BUSPIRONE HYDROCHLORIDE. [Suspect]
     Active Substance: BUSPIRONE HYDROCHLORIDE
     Indication: DEPRESSION
     Dosage: 3 DF, 1X/DAY
     Route: 048
  4. XANAX [Suspect]
     Active Substance: ALPRAZOLAM
     Indication: DEPRESSION
     Dosage: 0.75 MG, 1X/DAY
     Route: 048

REACTIONS (2)
  - Parkinsonism [Recovered/Resolved]
  - Orthostatic tremor [Not Recovered/Not Resolved]

NARRATIVE: CASE EVENT DATE: 201901
